FAERS Safety Report 26134946 (Version 1)
Quarter: 2025Q4

REPORT INFORMATION
  Report Type: Spontaneous
  Country: EU (occurrence: EU)
  Receive Date: 20251209
  Receipt Date: 20251209
  Transmission Date: 20260117
  Serious: Yes (Other)
  Sender: PIERRE FABRE MEDICAMENT
  Company Number: EU-PFM-2025-05855

PATIENT
  Age: 2 Month
  Sex: Female

DRUGS (1)
  1. PROPRANOLOL HYDROCHLORIDE [Suspect]
     Active Substance: PROPRANOLOL HYDROCHLORIDE
     Indication: Infantile haemangioma
     Dosage: 3 MG/KG/DAY
     Route: 065

REACTIONS (5)
  - Necrosis [Unknown]
  - Ulcer [Recovered/Resolved]
  - Product use issue [Unknown]
  - Drug titration error [Unknown]
  - Off label use [Unknown]
